FAERS Safety Report 11002893 (Version 1)
Quarter: 2015Q2

REPORT INFORMATION
  Report Type: Spontaneous
  Country: US (occurrence: US)
  Receive Date: 20150408
  Receipt Date: 20150408
  Transmission Date: 20150821
  Serious: No
  Sender: FDA-Public Use
  Company Number: US-B.I. PHARMACEUTICALS,INC./RIDGEFIELD-2015-BI-16558BP

PATIENT
  Age: 55 Year
  Sex: Female

DRUGS (2)
  1. COMBIVENT [Suspect]
     Active Substance: ALBUTEROL SULFATE\IPRATROPIUM BROMIDE
     Dosage: 4 PUF
     Route: 055
  2. COMBIVENT [Suspect]
     Active Substance: ALBUTEROL SULFATE\IPRATROPIUM BROMIDE
     Indication: BRONCHITIS CHRONIC
     Dosage: DOSE PER APPLICATION: 20 MCG / 100 MCG; DAILY DOSE: 160 MCG/800 MCG
     Route: 055
     Dates: start: 20150325

REACTIONS (4)
  - Throat irritation [Recovered/Resolved]
  - Palpitations [Recovered/Resolved]
  - Incorrect dosage administered [Unknown]
  - Tremor [Recovered/Resolved]

NARRATIVE: CASE EVENT DATE: 20150325
